FAERS Safety Report 5633871-1 (Version None)
Quarter: 2008Q1

REPORT INFORMATION
  Report Type: 
  Country: None (occurrence: None)
  Receive Date: 20080221
  Receipt Date: 20080219
  Transmission Date: 20080703
  Serious: Yes (Other)
  Sender: FDA-Public Use
  Company Number: TN-BOEHRINGER INGELHEIM GMBH, GERMANY-2008-BP-02433RO

PATIENT
  Age: 52 Year
  Sex: Female

DRUGS (6)
  1. METHOTREXATE [Suspect]
     Indication: PSORIASIS
     Route: 030
     Dates: start: 20060601
  2. FOLIC ACID [Suspect]
     Indication: PSORIASIS
  3. CAPTOPRIL [Concomitant]
     Indication: HYPERTENSION
     Dates: start: 19950101
  4. NIFEDIPINE [Concomitant]
     Indication: HYPERTENSION
     Dates: start: 19950101
  5. COTICOSTEROIDS [Concomitant]
     Indication: PSORIASIS
     Route: 061
  6. CALCIPOTRIENE [Concomitant]
     Indication: PSORIASIS
     Route: 061

REACTIONS (2)
  - PRURITUS [None]
  - RASH PAPULAR [None]
